FAERS Safety Report 4959609-9 (Version None)
Quarter: 2006Q1

REPORT INFORMATION
  Report Type: 
  Country: None (occurrence: None)
  Receive Date: 20060331
  Receipt Date: 20060322
  Transmission Date: 20060701
  Serious: Yes (Death, Hospitalization)
  Sender: FDA-Public Use
  Company Number: IT-ROCHE-441198

PATIENT
  Age: 65 Year
  Sex: Male

DRUGS (13)
  1. MYCOPHENOLATE MOFETIL [Suspect]
     Route: 042
     Dates: start: 20060117
  2. MYCOPHENOLATE MOFETIL [Suspect]
     Route: 042
     Dates: end: 20060206
  3. FK506 [Suspect]
     Route: 048
     Dates: start: 20060117, end: 20060128
  4. FK506 [Suspect]
     Route: 048
  5. FK506 [Suspect]
     Route: 048
  6. FK506 [Suspect]
     Route: 048
     Dates: end: 20060206
  7. FUROSEMIDE [Concomitant]
  8. OMEPRAZOLE [Concomitant]
  9. PIPERACILLIN AND TAZOBACTAM [Concomitant]
  10. TAZOBACTAM [Concomitant]
  11. ALBUMIN (HUMAN) [Concomitant]
  12. BACTRIM DS [Concomitant]
  13. INSULIN [Concomitant]

REACTIONS (7)
  - CARDIAC ARREST [None]
  - CONFUSIONAL STATE [None]
  - DRUG TOXICITY [None]
  - DYSLALIA [None]
  - NERVOUS SYSTEM DISORDER [None]
  - PORTAL VEIN THROMBOSIS [None]
  - SOMNOLENCE [None]
